FAERS Safety Report 12609289 (Version 1)
Quarter: 2016Q3

REPORT INFORMATION
  Report Type: Spontaneous
  Country: CZ (occurrence: CZ)
  Receive Date: 20160801
  Receipt Date: 20160801
  Transmission Date: 20161109
  Serious: Yes (Hospitalization)
  Sender: FDA-Public Use
  Company Number: CZ-ROCHE-1805310

PATIENT
  Age: 72 Year
  Sex: Female

DRUGS (8)
  1. MABTHERA [Suspect]
     Active Substance: RITUXIMAB
     Indication: RHEUMATOID ARTHRITIS
     Route: 042
     Dates: start: 20160229, end: 20160316
  2. PRESTARIUM NEO [Concomitant]
     Active Substance: PERINDOPRIL ARGININE
     Route: 065
  3. MABTHERA [Suspect]
     Active Substance: RITUXIMAB
     Indication: RHEUMATOID ARTHRITIS
     Route: 042
     Dates: start: 20160422, end: 20160513
  4. VIGANTOL [Concomitant]
     Route: 048
  5. DETRALEX [Concomitant]
     Active Substance: DIOSMIN\HESPERIDIN
     Route: 048
  6. CELEBREX [Concomitant]
     Active Substance: CELECOXIB
     Indication: RHEUMATOID ARTHRITIS
     Route: 048
  7. CALCICHEW [Concomitant]
     Active Substance: CALCIUM CARBONATE
     Route: 048
  8. LEFLUNOMID [Concomitant]
     Active Substance: LEFLUNOMIDE
     Route: 048

REACTIONS (2)
  - Squamous cell carcinoma of lung [Unknown]
  - Pneumonia [Recovered/Resolved with Sequelae]

NARRATIVE: CASE EVENT DATE: 20160519
